FAERS Safety Report 18840699 (Version 2)
Quarter: 2021Q1

REPORT INFORMATION
  Report Type: Other
  Country: US (occurrence: US)
  Receive Date: 20210204
  Receipt Date: 20210219
  Transmission Date: 20210419
  Serious: Yes (Other)
  Sender: FDA-Public Use
  Company Number: US-ROCHE-2754351

PATIENT
  Age: 56 Year
  Sex: Female
  Weight: 83.35 kg

DRUGS (17)
  1. OCREVUS [Suspect]
     Active Substance: OCRELIZUMAB
     Indication: MULTIPLE SCLEROSIS
     Dosage: TWO BENADRYL BEFORE OCREVUS INFUSIONS ;ONGOING: YES
     Route: 042
     Dates: start: 20191121, end: 201912
  2. TYLENOL [Concomitant]
     Active Substance: ACETAMINOPHEN
     Indication: PREMEDICATION
     Dosage: THREE TYLENOL BEFORE OCREVUS INFUSIONS ;ONGOING: YES
     Route: 048
     Dates: start: 201911
  3. CBD OIL [Concomitant]
     Active Substance: CANNABIDIOL\HERBALS
     Dosage: 100?200 MG ;ONGOING: YES
     Route: 048
     Dates: start: 201908
  4. VITAMIN D2 [Concomitant]
     Active Substance: ERGOCALCIFEROL
     Dosage: 50000 UNIT
  5. OCREVUS [Suspect]
     Active Substance: OCRELIZUMAB
     Indication: MULTIPLE SCLEROSIS
     Route: 042
     Dates: start: 202007
  6. MAGNESIUM GLYCINATE [Concomitant]
     Active Substance: MAGNESIUM GLYCINATE
     Indication: MUSCLE SPASMS
     Dates: start: 201908
  7. VITAMIN D2 [Concomitant]
     Active Substance: ERGOCALCIFEROL
     Indication: VITAMIN D DECREASED
     Dosage: 50,000 UNITS ;ONGOING: YES
     Dates: start: 2014
  8. COENZYME Q10 [Concomitant]
     Active Substance: DIETARY SUPPLEMENT\UBIDECARENONE
     Dates: start: 201908
  9. TURMERIC CURCUMIN [Concomitant]
     Active Substance: HERBALS\TURMERIC
     Dates: start: 201908
  10. MAGNESIUM GLYCINATE [Concomitant]
     Active Substance: MAGNESIUM GLYCINATE
     Indication: RESTLESS LEGS SYNDROME
  11. GABAPENTIN. [Concomitant]
     Active Substance: GABAPENTIN
  12. VITAMIN C [Concomitant]
     Active Substance: ASCORBIC ACID
     Dosage: ONGOING: YES
  13. THC [Concomitant]
     Active Substance: DRONABINOL
     Indication: INSOMNIA
     Dosage: HALF A GUMMY. IF BAD, ONE GUMMY. ;ONGOING: YES
     Route: 048
     Dates: start: 202008
  14. LISINOPRIL HCTZ [Concomitant]
     Active Substance: HYDROCHLOROTHIAZIDE\LISINOPRIL
     Indication: HYPERTENSION
     Dosage: 10/12.5 ;ONGOING: YES
     Route: 048
     Dates: start: 2013
  15. BENADRYL [Suspect]
     Active Substance: DIPHENHYDRAMINE HYDROCHLORIDE
     Indication: PREMEDICATION
     Dosage: TWO BENADRYL BEFORE OCREVUS INFUSIONS ;ONGOING: YES
     Route: 048
     Dates: start: 201911
  16. ELDERBERRY [Concomitant]
     Active Substance: HERBALS
     Dosage: ELDERBERRY WITH 10 MG ZINC
     Dates: start: 202011
  17. ALPHA LIPOIC ACID [Concomitant]
     Active Substance: .ALPHA.-LIPOIC ACID
     Dates: start: 201908

REACTIONS (9)
  - Throat tightness [Recovered/Resolved]
  - Sinusitis [Recovered/Resolved]
  - Dizziness [Recovered/Resolved]
  - Herpes zoster [Recovered/Resolved]
  - Somnolence [Unknown]
  - Hypersomnia [Unknown]
  - Lower respiratory tract infection [Recovered/Resolved]
  - Respiratory tract infection [Recovered/Resolved]
  - Upper respiratory tract infection [Recovered/Resolved]

NARRATIVE: CASE EVENT DATE: 201911
